FAERS Safety Report 10977089 (Version 5)
Quarter: 2015Q2

REPORT INFORMATION
  Report Type: Report from Study
  Country: AT (occurrence: AT)
  Receive Date: 20150402
  Receipt Date: 20150629
  Transmission Date: 20150821
  Serious: Yes (Hospitalization)
  Sender: FDA-Public Use
  Company Number: AT-ROCHE-1558983

PATIENT
  Age: 12 Year
  Sex: Male
  Weight: 46.4 kg

DRUGS (12)
  1. ETOPOSIDE. [Suspect]
     Active Substance: ETOPOSIDE
     Indication: MEDULLOBLASTOMA
     Dosage: LAST DOSE PRIOR TO SAE: 23/JUN/2015
     Route: 065
     Dates: start: 20141009
  2. ETOPOSIDE PHOSPHATE [Suspect]
     Active Substance: ETOPOSIDE PHOSPHATE
     Route: 065
     Dates: start: 20150622
  3. ETOPOSIDE PHOSPHATE [Suspect]
     Active Substance: ETOPOSIDE PHOSPHATE
     Indication: MEDULLOBLASTOMA
     Dosage: LAST DOSE PRIOR TO SAE: 23/JUN/2015
     Route: 065
     Dates: start: 20141009
  4. LIDAPRIM FORTE [Concomitant]
     Dosage: 2X80 MG(MO-MI)
     Route: 048
     Dates: start: 20141020
  5. LIPOSOMAL CYTARABINE [Suspect]
     Active Substance: CYTARABINE
     Indication: MEDULLOBLASTOMA
     Dosage: LAST DOSE PRIOR TO SAE: 23/JUN/2015
     Route: 065
     Dates: start: 20141009
  6. CYCLOPHOSPHAMIDE. [Suspect]
     Active Substance: CYCLOPHOSPHAMIDE
     Indication: MEDULLOBLASTOMA
     Dosage: UNTIL 29/MAR/2015; LAST DOSE PRIOR TO SAE: 23/JUN/2015
     Route: 065
     Dates: start: 20141009, end: 20150330
  7. THALIDOMIDE [Suspect]
     Active Substance: THALIDOMIDE
     Indication: MEDULLOBLASTOMA
     Dosage: LAST DOSE PRIOR TO SAE: 23/JUN/2015
     Route: 065
     Dates: start: 20141009
  8. CELECOXIB. [Suspect]
     Active Substance: CELECOXIB
     Indication: MEDULLOBLASTOMA
     Dosage: 2X300MG ; LAST DOSE PRIOR TO SAE: 23/JUN/2015
     Route: 065
     Dates: start: 20141009
  9. BEVACIZUMAB [Suspect]
     Active Substance: BEVACIZUMAB
     Indication: MEDULLOBLASTOMA
     Dosage: LAST DOSE PRIOR TO SAE: 23/JUN/2015
     Route: 065
     Dates: start: 20141009
  10. FENOFIBRATE. [Suspect]
     Active Substance: FENOFIBRATE
     Indication: MEDULLOBLASTOMA
     Dosage: LAST DOSE PRIOR TO SAE: 23/JUN/2015
     Route: 065
     Dates: start: 20141009, end: 20150330
  11. LIDAPRIM FORTE [Concomitant]
     Indication: PROPHYLAXIS
     Route: 048
     Dates: start: 20141020
  12. THYREX [Concomitant]
     Active Substance: LEVOTHYROXINE SODIUM
     Route: 048
     Dates: start: 20140830

REACTIONS (2)
  - Papilloedema [Recovered/Resolved]
  - Diplopia [Recovered/Resolved]

NARRATIVE: CASE EVENT DATE: 20150330
